FAERS Safety Report 10697662 (Version 1)
Quarter: 2015Q1

REPORT INFORMATION
  Report Type: Spontaneous
  Country: US (occurrence: US)
  Receive Date: 20150108
  Receipt Date: 20150108
  Transmission Date: 20150721
  Serious: Yes (Hospitalization)
  Sender: FDA-Public Use
  Company Number: US-ASTRAZENECA-2015SE00802

PATIENT
  Age: 67 Year
  Sex: Female

DRUGS (3)
  1. OSTEOPOROSIS MEDICINE [Concomitant]
     Indication: OSTEOPOROSIS
  2. DIABETES MEDICINE [Concomitant]
     Indication: DIABETES MELLITUS
  3. CRESTOR [Suspect]
     Active Substance: ROSUVASTATIN CALCIUM
     Indication: BLOOD CHOLESTEROL ABNORMAL
     Dosage: DAILY
     Route: 048
     Dates: start: 2010, end: 201412

REACTIONS (10)
  - Muscle atrophy [Unknown]
  - Renal failure [Unknown]
  - Osteoporosis [Unknown]
  - Diabetes mellitus [Unknown]
  - Myalgia [Unknown]
  - Asthenia [Unknown]
  - Blood glucose decreased [Unknown]
  - Nausea [Unknown]
  - Dysstasia [Unknown]
  - Decreased appetite [Unknown]

NARRATIVE: CASE EVENT DATE: 201412
